FAERS Safety Report 16315152 (Version 2)
Quarter: 2019Q2

REPORT INFORMATION
  Report Type: Spontaneous
  Country: NZ (occurrence: NZ)
  Receive Date: 20190515
  Receipt Date: 20190522
  Transmission Date: 20190711
  Serious: No
  Sender: FDA-Public Use
  Company Number: NZ-MYLANLABS-2017M1023044

PATIENT
  Age: 29 Year
  Sex: Male

DRUGS (1)
  1. CLOZARIL [Suspect]
     Active Substance: CLOZAPINE
     Indication: SCHIZOPHRENIA
     Dosage: UNK
     Route: 048
     Dates: start: 20110210

REACTIONS (1)
  - Neutrophil count increased [Unknown]

NARRATIVE: CASE EVENT DATE: 20170306
